FAERS Safety Report 9010748 (Version 1)
Quarter: 2013Q1

REPORT INFORMATION
  Report Type: Spontaneous
  Country: US (occurrence: US)
  Receive Date: 20130109
  Receipt Date: 20130109
  Transmission Date: 20140127
  Serious: Yes (Other)
  Sender: FDA-Public Use
  Company Number: US-009507513-1301USA001964

PATIENT
  Age: 58 Year
  Sex: Female

DRUGS (3)
  1. SINGULAIR [Suspect]
     Indication: BRONCHITIS CHRONIC
     Dosage: 10 MG, QD
  2. FLUTICASONE PROPIONATE/SALMETEROL [Suspect]
     Dosage: 2ACTU, QD
     Route: 055
  3. TELFAST [Concomitant]
     Dosage: 120 MG, QD

REACTIONS (4)
  - Pain [Unknown]
  - Paraesthesia [Unknown]
  - Pain in extremity [Unknown]
  - Immune system disorder [Unknown]
